FAERS Safety Report 6501908-3 (Version None)
Quarter: 2009Q4

REPORT INFORMATION
  Report Type: 
  Country: None (occurrence: None)
  Receive Date: 20091216
  Receipt Date: 20091204
  Transmission Date: 20100525
  Serious: Yes (Hospitalization)
  Sender: FDA-Public Use
  Company Number: PHBS2004JP16466

PATIENT
  Age: 44 Year
  Sex: Male

DRUGS (6)
  1. TEGRETOL [Suspect]
     Dosage: UNK
     Route: 048
     Dates: start: 20040616, end: 20040718
  2. CONTOMIN [Concomitant]
     Dosage: UNK
     Route: 048
     Dates: end: 20040718
  3. PAXIL [Concomitant]
     Dosage: UNK
     Route: 048
     Dates: start: 20020820, end: 20040718
  4. DEPAS [Concomitant]
     Dosage: UNK
     Route: 048
     Dates: start: 20020820, end: 20040718
  5. LANDSEN [Concomitant]
     Dosage: UNK
     Route: 048
     Dates: start: 20020820, end: 20040718
  6. SOLANAX [Concomitant]
     Dosage: UNK
     Route: 048
     Dates: start: 20020820, end: 20040718

REACTIONS (27)
  - BLOOD IMMUNOGLOBULIN G DECREASED [None]
  - BLOOD IMMUNOGLOBULIN M DECREASED [None]
  - DRUG RASH WITH EOSINOPHILIA AND SYSTEMIC SYMPTOMS [None]
  - DYSPNOEA [None]
  - EAR CANAL ERYTHEMA [None]
  - EOSINOPHILIA [None]
  - FACE OEDEMA [None]
  - GENERALISED ERYTHEMA [None]
  - HEPATIC ENZYME INCREASED [None]
  - HEPATIC FUNCTION ABNORMAL [None]
  - HEPATITIS [None]
  - HUMAN HERPESVIRUS 6 INFECTION [None]
  - LARYNGEAL OEDEMA [None]
  - LEUKOCYTOSIS [None]
  - LOCALISED OEDEMA [None]
  - LYMPHADENOPATHY [None]
  - LYMPHOCYTE MORPHOLOGY ABNORMAL [None]
  - LYMPHOCYTE STIMULATION TEST POSITIVE [None]
  - MALAISE [None]
  - ORAL MUCOSAL ERYTHEMA [None]
  - OROPHARYNGEAL BLISTERING [None]
  - PRURITUS [None]
  - PYREXIA [None]
  - RASH [None]
  - RASH GENERALISED [None]
  - RASH PAPULAR [None]
  - SCAB [None]
